FAERS Safety Report 11906342 (Version 1)
Quarter: 2016Q1

REPORT INFORMATION
  Report Type: Spontaneous
  Country: US (occurrence: None)
  Receive Date: 20160108
  Receipt Date: 20160108
  Transmission Date: 20160526
  Serious: No
  Sender: FDA-Public Use
  Company Number: None

PATIENT
  Age: 69 Year
  Sex: Male

DRUGS (19)
  1. MUTLI-VITE [Concomitant]
  2. CLARINEX-D [Concomitant]
     Active Substance: DESLORATADINE\PSEUDOEPHEDRINE SULFATE
  3. XTANDI [Concomitant]
     Active Substance: ENZALUTAMIDE
  4. NAMENDA [Concomitant]
     Active Substance: MEMANTINE HYDROCHLORIDE
  5. ZYTIGA [Suspect]
     Active Substance: ABIRATERONE ACETATE
     Indication: PROSTATE CANCER
     Route: 048
     Dates: start: 20140808
  6. LEUPROLIDE [Concomitant]
     Active Substance: LEUPROLIDE
  7. PROSTAGLANDIN [Concomitant]
  8. LISINOPRIL. [Concomitant]
     Active Substance: LISINOPRIL
  9. PLAVIX [Concomitant]
     Active Substance: CLOPIDOGREL BISULFATE
  10. FENOFIBRATE. [Concomitant]
     Active Substance: FENOFIBRATE
  11. PREDNISOLONE. [Concomitant]
     Active Substance: PREDNISOLONE
  12. APAP [Concomitant]
     Active Substance: ACETAMINOPHEN
  13. LIPITOR [Concomitant]
     Active Substance: ATORVASTATIN CALCIUM
  14. METAMUCIL [Concomitant]
     Active Substance: PLANTAGO SEED
  15. TAMSULOSIN [Concomitant]
     Active Substance: TAMSULOSIN
  16. TRAMADOL. [Concomitant]
     Active Substance: TRAMADOL
  17. ASPIRIN. [Concomitant]
     Active Substance: ASPIRIN
  18. OSTEO BI-FLEX [Concomitant]
     Active Substance: CHONDROITIN SULFATE A\GLUCOSAMINE
  19. EXTAVIA [Concomitant]
     Active Substance: INTERFERON BETA-1B

REACTIONS (1)
  - Visual impairment [None]

NARRATIVE: CASE EVENT DATE: 201511
